FAERS Safety Report 7027477-X (Version None)
Quarter: 2010Q4

REPORT INFORMATION
  Report Type: 
  Country: None (occurrence: None)
  Receive Date: 20101004
  Receipt Date: 20100923
  Transmission Date: 20110411
  Serious: Yes (Hospitalization)
  Sender: FDA-Public Use
  Company Number: US-ASTRAZENECA-2010SE45473

PATIENT
  Age: 60 Year
  Sex: Female

DRUGS (5)
  1. ONGLYZA [Suspect]
     Route: 048
     Dates: start: 20100806, end: 20100101
  2. METFORMIN [Concomitant]
     Route: 065
  3. LISINOPRIL [Concomitant]
     Route: 048
  4. HYDROCHLOROTHIAZIDE [Concomitant]
     Route: 065
  5. LOPID [Concomitant]
     Route: 065

REACTIONS (1)
  - URTICARIA [None]
